FAERS Safety Report 6308593-4 (Version None)
Quarter: 2009Q3

REPORT INFORMATION
  Report Type: 
  Country: None (occurrence: None)
  Receive Date: 20090813
  Receipt Date: 20090807
  Transmission Date: 20100115
  Serious: Yes (Hospitalization, Other)
  Sender: FDA-Public Use
  Company Number: PHHO2009US08583

PATIENT
  Sex: Male
  Weight: 74.83 kg

DRUGS (12)
  1. CGP 41251 T30685+CAPS [Suspect]
     Indication: ACUTE MYELOID LEUKAEMIA
     Dosage: 50MG, BID
     Route: 048
     Dates: start: 20090401, end: 20090703
  2. CGP 41251 T30685+CAPS [Suspect]
     Dosage: 50 MG, BID
     Route: 048
     Dates: start: 20090704, end: 20090712
  3. CGP 41251 T30685+CAPS [Suspect]
     Dosage: 50 MG, BID
     Route: 048
     Dates: start: 20090713, end: 20090727
  4. RAD 666 RAD++CMAS [Suspect]
     Indication: ACUTE MYELOID LEUKAEMIA
     Dosage: 5MG, QOD
     Route: 048
     Dates: start: 20090331, end: 20090727
  5. ATENOLOL [Concomitant]
  6. LOTREL [Concomitant]
  7. EXJADE [Concomitant]
  8. GEMFIBROZIL [Concomitant]
  9. BENADRYL [Concomitant]
  10. PREDNISONE [Concomitant]
  11. PILOCARPINE HYDROCHLORIDE [Concomitant]
  12. XALATAN [Concomitant]

REACTIONS (7)
  - DYSPNOEA [None]
  - EMPHYSEMA [None]
  - LUNG INFILTRATION [None]
  - LUNG NEOPLASM [None]
  - PANCYTOPENIA [None]
  - PNEUMONIA [None]
  - PYREXIA [None]
